FAERS Safety Report 22209039 (Version 1)
Quarter: 2023Q2

REPORT INFORMATION
  Report Type: Spontaneous
  Country: US (occurrence: US)
  Receive Date: 20230413
  Receipt Date: 20230413
  Transmission Date: 20230722
  Serious: No
  Sender: FDA-Public Use
  Company Number: US-TRAVERE-2022TVT00548

PATIENT
  Age: 3 Year
  Sex: Female

DRUGS (4)
  1. CHOLIC ACID [Suspect]
     Active Substance: CHOLIC ACID
     Indication: Metabolic disorder
     Route: 048
     Dates: start: 20191002
  2. AQUADESK [Concomitant]
  3. Probiotic Childrens [Concomitant]
  4. MULTI-VITAMIN [Concomitant]
     Active Substance: .ALPHA.-TOCOPHEROL ACETATE, DL-\ASCORBIC ACID\CYANOCOBALAMIN\FLUORIDE ION\FOLIC ACID\NIACIN\PYRIDOXI

REACTIONS (2)
  - Weight fluctuation [Unknown]
  - Illness [Unknown]
